FAERS Safety Report 8237821-3 (Version None)
Quarter: 2012Q1

REPORT INFORMATION
  Report Type: 
  Country: None (occurrence: None)
  Receive Date: 20120323
  Receipt Date: 20120316
  Transmission Date: 20120608
  Serious: Yes (Hospitalization)
  Sender: FDA-Public Use
  Company Number: ACO_29350_2012

PATIENT
  Age: 79 Year
  Sex: Female
  Weight: 90.7 kg

DRUGS (10)
  1. AVONEX [Concomitant]
  2. CELEBREX [Concomitant]
  3. MECLIZINE /00072801/ (MECLOZINE) [Concomitant]
  4. OXCARBAZEPINE [Concomitant]
  5. PHENERGAN /00033001/ (PROMETHAZINE) [Concomitant]
  6. VASOTEC /00574902/ (ENALAPRIL MALEATE) [Concomitant]
  7. AMITRIPTYLINE HCL [Concomitant]
  8. AMPYRA [Suspect]
     Indication: MULTIPLE SCLEROSIS
     Dosage: UNK
     Dates: end: 20111201
  9. SYMMETREL [Concomitant]
  10. FUROSEMIDE [Concomitant]

REACTIONS (4)
  - INTESTINAL OBSTRUCTION [None]
  - FALL [None]
  - LOWER LIMB FRACTURE [None]
  - FEMUR FRACTURE [None]
